FAERS Safety Report 8828253 (Version 3)
Quarter: 2013Q3

REPORT INFORMATION
  Report Type: Spontaneous
  Country: US (occurrence: US)
  Receive Date: 20121008
  Receipt Date: 20130927
  Transmission Date: 20140515
  Serious: Yes (Hospitalization)
  Sender: FDA-Public Use
  Company Number: PHEH2012US019359

PATIENT
  Age: 40 Year
  Sex: Female

DRUGS (3)
  1. GILENYA [Suspect]
     Indication: MULTIPLE SCLEROSIS
     Dosage: UNK
     Route: 048
     Dates: start: 20110130
  2. GILENYA [Suspect]
     Dosage: 20 DF, ONCE/SINGLE
     Route: 048
     Dates: start: 20120115
  3. GILENYA [Suspect]
     Dosage: UNK
     Route: 048
     Dates: end: 20120130

REACTIONS (4)
  - Suicide attempt [Recovered/Resolved]
  - Intentional overdose [Unknown]
  - Nausea [Recovered/Resolved]
  - Diarrhoea [Recovered/Resolved]
